FAERS Safety Report 4629222-1 (Version None)
Quarter: 2005Q2

REPORT INFORMATION
  Report Type: 
  Country: None (occurrence: None)
  Receive Date: 20050405
  Receipt Date: 20050322
  Transmission Date: 20051028
  Serious: Yes (Hospitalization)
  Sender: FDA-Public Use
  Company Number: 2005BI004136

PATIENT
  Age: 45 Year
  Sex: Female
  Weight: 68.0396 kg

DRUGS (4)
  1. AVONEX [Suspect]
     Indication: MULTIPLE SCLEROSIS
     Dosage: 30 UG;QW;IM
     Dates: start: 19980101, end: 20030101
  2. AVONEX [Suspect]
     Indication: MULTIPLE SCLEROSIS
     Dosage: 30 UG;QW;IM
     Route: 030
     Dates: start: 20041001
  3. BACLOFEN [Concomitant]
  4. STEROID (NOS) [Concomitant]

REACTIONS (5)
  - ASEPTIC NECROSIS BONE [None]
  - DIFFICULTY IN WALKING [None]
  - FALL [None]
  - FATIGUE [None]
  - HIP FRACTURE [None]
